FAERS Safety Report 7220712-4 (Version None)
Quarter: 2011Q1

REPORT INFORMATION
  Report Type: 
  Country: None (occurrence: None)
  Receive Date: 20110111
  Receipt Date: 20101111
  Transmission Date: 20110831
  Serious: Yes (Other)
  Sender: FDA-Public Use
  Company Number: US-AMGEN-QUU399851

PATIENT
  Sex: Male

DRUGS (2)
  1. NPLATE [Suspect]
     Dates: start: 20081023, end: 20081113
  2. NPLATE [Suspect]
     Indication: PRODUCT USED FOR UNKNOWN INDICATION
     Dosage: 3 A?G/KG, UNK
     Dates: start: 20081023, end: 20081113

REACTIONS (3)
  - ANGIOPATHY [None]
  - THROMBOCYTOPENIA [None]
  - CONTUSION [None]
